FAERS Safety Report 4622607-9 (Version None)
Quarter: 2005Q1

REPORT INFORMATION
  Report Type: 
  Country: None (occurrence: None)
  Receive Date: 20050325
  Receipt Date: 20050325
  Transmission Date: 20050727
  Serious: Yes (Life-Threatening, Hospitalization)
  Sender: FDA-Public Use
  Company Number: None

PATIENT
  Age: 82 Year
  Sex: Male

DRUGS (8)
  1. CAPECITABINE [Suspect]
     Indication: RECTAL CANCER
     Dosage: 1GM PO BID
     Route: 048
     Dates: start: 20041123, end: 20050104
  2. AZITHROMYCIN [Concomitant]
  3. CAPECITABINE [Concomitant]
  4. LOPERAMIDE HCL [Concomitant]
  5. OMEPRAZOLE [Concomitant]
  6. ONDANSETRON HCL [Concomitant]
  7. PROCHLORPERAZINE [Concomitant]
  8. PYRIDOXINE HCL [Concomitant]

REACTIONS (2)
  - CARDIOTOXICITY [None]
  - MYOCARDIAL INFARCTION [None]
